FAERS Safety Report 9259232 (Version 1)
Quarter: 2013Q2

REPORT INFORMATION
  Report Type: Spontaneous
  Country: AU (occurrence: AU)
  Receive Date: 20130426
  Receipt Date: 20130426
  Transmission Date: 20140414
  Serious: Yes (Life-Threatening, Hospitalization)
  Sender: FDA-Public Use
  Company Number: AU-ASTRAZENECA-2013SE28328

PATIENT
  Age: 84 Year
  Sex: Female

DRUGS (5)
  1. NEXIUM [Suspect]
     Route: 048
  2. CLOPIDOGREL [Suspect]
     Route: 065
  3. METFORMIN HYDROCHLORIDE [Suspect]
     Route: 065
  4. MONOPLUS [Suspect]
     Dosage: 20/12.5
     Route: 065
  5. PRAVASTATIN [Suspect]
     Route: 065

REACTIONS (5)
  - Lactic acidosis [Recovered/Resolved]
  - Hypotension [Recovered/Resolved]
  - Renal failure acute [Recovered/Resolved]
  - Nausea [Unknown]
  - Vomiting [Unknown]
